APPROVED DRUG PRODUCT: KALLIGA
Active Ingredient: DESOGESTREL; ETHINYL ESTRADIOL
Strength: 0.15MG;0.03MG
Dosage Form/Route: TABLET;ORAL-28
Application: A207081 | Product #001 | TE Code: AB
Applicant: AUROBINDO PHARMA LTD
Approved: May 17, 2017 | RLD: No | RS: No | Type: RX